FAERS Safety Report 10033130 (Version 1)
Quarter: 2014Q1

REPORT INFORMATION
  Report Type: Spontaneous
  Country: GB (occurrence: GB)
  Receive Date: 20140324
  Receipt Date: 20140324
  Transmission Date: 20141002
  Serious: Yes (Other)
  Sender: FDA-Public Use
  Company Number: GB-ACTAVIS-2014-05184

PATIENT
  Age: 18 Year
  Sex: Male

DRUGS (2)
  1. QUETIAPINE (UNKNOWN) [Suspect]
     Indication: PRODUCT USED FOR UNKNOWN INDICATION
     Dosage: 75 MG UNK. 50 MG ON MORNING AND 25 MG ON NIGHT
     Route: 065
  2. CONCERTA [Suspect]
     Indication: PRODUCT USED FOR UNKNOWN INDICATION
     Dosage: 54 MG (36 MG PLUS 18 MG)
     Route: 048

REACTIONS (1)
  - Electrocardiogram ST segment elevation [Unknown]
